FAERS Safety Report 4919745-X (Version None)
Quarter: 2006Q1

REPORT INFORMATION
  Report Type: 
  Country: None (occurrence: None)
  Receive Date: 20060221
  Receipt Date: 20060210
  Transmission Date: 20060701
  Serious: Yes (Life-Threatening, Other)
  Sender: FDA-Public Use
  Company Number: 2005169934

PATIENT
  Age: 67 Year
  Sex: Female

DRUGS (5)
  1. DOXAZOSIN (DOXAZOSIN) [Suspect]
     Indication: ILL-DEFINED DISORDER
     Dosage: 2 MG (2 MG DAILY)ORAL
     Route: 048
     Dates: start: 20000620
  2. DICLOFENAC SODIUM [Concomitant]
  3. CIPROFIBRATE (CIPROFIBRATE) [Concomitant]
  4. LACRI-LUBE (LANOLIN, MINERAL OIL LIGHT, PETROLATUM) [Concomitant]
  5. CO-PROXAMOL (DEXTROPROPOXYPHENE HYDROCHLORIDE, PARACETAMOL) [Concomitant]

REACTIONS (3)
  - DIZZINESS [None]
  - HALLUCINATION, VISUAL [None]
  - PHOTOPSIA [None]
